FAERS Safety Report 9318720 (Version 1)
Quarter: 2013Q2

REPORT INFORMATION
  Report Type: Spontaneous
  Country: PL (occurrence: None)
  Receive Date: 20130524
  Receipt Date: 20130524
  Transmission Date: 20140414
  Serious: Yes (Life-Threatening, Hospitalization, Other)
  Sender: FDA-Public Use
  Company Number: 2012230571

PATIENT
  Age: 80 Year
  Sex: Male
  Weight: 100 kg

DRUGS (2)
  1. FRAGMIN [Suspect]
     Indication: HIP ARTHROPLASTY
     Route: 058
     Dates: start: 20120801, end: 20120818
  2. POLTRAM [Concomitant]

REACTIONS (4)
  - Deep vein thrombosis [None]
  - Pulmonary embolism [None]
  - Atrial thrombosis [None]
  - Deep vein thrombosis [None]
